FAERS Safety Report 17479228 (Version 4)
Quarter: 2020Q2

REPORT INFORMATION
  Report Type: Report from Study
  Country: CA (occurrence: CA)
  Receive Date: 20200228
  Receipt Date: 20200511
  Transmission Date: 20200713
  Serious: Yes (Hospitalization, Other)
  Sender: FDA-Public Use
  Company Number: CA-JNJFOC-20191205474

PATIENT
  Age: 20 Year
  Sex: Female
  Weight: 68.8 kg

DRUGS (6)
  1. STELARA [Suspect]
     Active Substance: USTEKINUMAB
     Indication: CROHN^S DISEASE
     Route: 058
     Dates: start: 20170323
  2. AMITRIPTYLINE [Concomitant]
     Active Substance: AMITRIPTYLINE
  3. IMURAN [Concomitant]
     Active Substance: AZATHIOPRINE
  4. STELARA [Suspect]
     Active Substance: USTEKINUMAB
     Route: 058
     Dates: start: 20170323
  5. CODEINE [Concomitant]
     Active Substance: CODEINE
  6. PANTOPRAZOLE [Concomitant]
     Active Substance: PANTOPRAZOLE

REACTIONS (5)
  - Abdominal abscess [Not Recovered/Not Resolved]
  - General physical health deterioration [Unknown]
  - Diarrhoea [Unknown]
  - Abdominal pain [Unknown]
  - Fistula [Unknown]

NARRATIVE: CASE EVENT DATE: 20191103
